FAERS Safety Report 11814900 (Version 1)
Quarter: 2015Q4

REPORT INFORMATION
  Report Type: Spontaneous
  Country: US (occurrence: US)
  Receive Date: 20151209
  Receipt Date: 20151209
  Transmission Date: 20160305
  Serious: No
  Sender: FDA-Public Use
  Company Number: US-SA-2015SA139067

PATIENT
  Sex: Male

DRUGS (2)
  1. INSULINS AND ANALOGUES,FAST-ACTING [Concomitant]
     Active Substance: INSULIN NOS
  2. TOUJEO [Suspect]
     Active Substance: INSULIN GLARGINE
     Route: 065

REACTIONS (2)
  - Blood glucose fluctuation [Unknown]
  - Off label use [Unknown]
